FAERS Safety Report 20723529 (Version 2)
Quarter: 2022Q2

REPORT INFORMATION
  Report Type: Report from Study
  Country: US (occurrence: US)
  Receive Date: 20220419
  Receipt Date: 20220426
  Transmission Date: 20220720
  Serious: Yes (Hospitalization)
  Sender: FDA-Public Use
  Company Number: US-BoehringerIngelheim-2022-BI-165418

PATIENT
  Age: 81 Year
  Sex: Male

DRUGS (9)
  1. GILOTRIF [Suspect]
     Active Substance: AFATINIB
     Indication: Non-small cell lung cancer metastatic
     Route: 048
     Dates: start: 20220319, end: 20220403
  2. GILOTRIF [Suspect]
     Active Substance: AFATINIB
     Dates: start: 20220403, end: 20220408
  3. GILOTRIF [Suspect]
     Active Substance: AFATINIB
     Route: 048
  4. CIALIS [Concomitant]
     Active Substance: TADALAFIL
     Indication: Product used for unknown indication
  5. CHLORTHALIDONE [Concomitant]
     Active Substance: CHLORTHALIDONE
     Indication: Product used for unknown indication
  6. LOSARTAN [Concomitant]
     Active Substance: LOSARTAN
     Indication: Product used for unknown indication
  7. METFORMIN [Concomitant]
     Active Substance: METFORMIN HYDROCHLORIDE
     Indication: Product used for unknown indication
  8. MAGNESIUM [Concomitant]
     Active Substance: MAGNESIUM
     Indication: Product used for unknown indication
  9. MARINOL [Concomitant]
     Active Substance: DRONABINOL
     Indication: Product used for unknown indication

REACTIONS (13)
  - Abdominal pain upper [Recovering/Resolving]
  - Asthenia [Recovering/Resolving]
  - Diarrhoea [Recovering/Resolving]
  - Oral pain [Recovering/Resolving]
  - Asthenia [Recovering/Resolving]
  - Lip blister [Recovering/Resolving]
  - Somnolence [Recovering/Resolving]
  - Feeding disorder [Recovering/Resolving]
  - General physical health deterioration [Unknown]
  - Mouth swelling [Unknown]
  - Aphthous ulcer [Unknown]
  - Decreased appetite [Unknown]
  - Weight decreased [Unknown]

NARRATIVE: CASE EVENT DATE: 20220411
